FAERS Safety Report 5418223-1 (Version None)
Quarter: 2007Q3

REPORT INFORMATION
  Report Type: 
  Country: None (occurrence: None)
  Receive Date: 20070817
  Receipt Date: 20070807
  Transmission Date: 20080115
  Serious: Yes (Other)
  Sender: FDA-Public Use
  Company Number: US-ROCHE-510574

PATIENT
  Age: 56 Year
  Sex: Female
  Weight: 84.4 kg

DRUGS (3)
  1. BONIVA [Suspect]
     Indication: OSTEOPOROSIS
     Route: 048
  2. TRAVATAN [Concomitant]
     Dosage: REPORTED TRAVATAN EYE DROPS AT BEDTIME IN BOTH EYES.
  3. TRUSOPT EYE DROPS [Concomitant]
     Dosage: REPORTED AS TRUSOPT TWICE DAILY IN RIGHT EYE.

REACTIONS (2)
  - INTRAOCULAR PRESSURE DECREASED [None]
  - INTRAOCULAR PRESSURE INCREASED [None]
